FAERS Safety Report 4319400-3 (Version None)
Quarter: 2004Q1

REPORT INFORMATION
  Report Type: 
  Country: None (occurrence: None)
  Receive Date: 20040318
  Receipt Date: 20040318
  Transmission Date: 20041129
  Serious: Yes (Hospitalization)
  Sender: FDA-Public Use
  Company Number: None

PATIENT
  Age: 29 Year
  Sex: Female
  Weight: 62.5964 kg

DRUGS (8)
  1. LEVOFLOXACIN [Suspect]
     Indication: ESCHERICHIA INFECTION
     Dosage: 500 MG DAILY X1 ORAL
     Route: 048
     Dates: start: 20031117, end: 20030117
  2. LEVOFLOXACIN [Suspect]
     Indication: URINARY TRACT INFECTION
     Dosage: 500 MG DAILY X1 ORAL
     Route: 048
     Dates: start: 20031117, end: 20030117
  3. BACTRIM [Suspect]
     Indication: ESCHERICHIA INFECTION
     Dosage: 800MG/160 MG DAILY X 9 ORAL
     Route: 048
     Dates: start: 20031218, end: 20031227
  4. BACTRIM [Suspect]
     Indication: URINARY TRACT INFECTION
     Dosage: 800MG/160 MG DAILY X 9 ORAL
     Route: 048
     Dates: start: 20031218, end: 20031227
  5. AMANTADINE HCL [Concomitant]
  6. PHENERGAN [Concomitant]
  7. TYLENOL (CAPLET) [Concomitant]
  8. IBUPROFEN [Concomitant]

REACTIONS (12)
  - ALANINE AMINOTRANSFERASE INCREASED [None]
  - ARTHRALGIA [None]
  - ASPARTATE AMINOTRANSFERASE INCREASED [None]
  - BLOOD CREATININE INCREASED [None]
  - DISSEMINATED INTRAVASCULAR COAGULATION [None]
  - HAEMODIALYSIS [None]
  - HEADACHE [None]
  - INFLUENZA [None]
  - LIVER DISORDER [None]
  - MYALGIA [None]
  - NAUSEA [None]
  - VOMITING [None]
